FAERS Safety Report 5639869-1 (Version None)
Quarter: 2008Q1

REPORT INFORMATION
  Report Type: 
  Country: None (occurrence: None)
  Receive Date: 20080131
  Receipt Date: 20071105
  Transmission Date: 20080703
  Serious: Yes (Life-Threatening, Other)
  Sender: FDA-Public Use
  Company Number: 163-21880-07101199

PATIENT
  Age: 54 Year
  Sex: Male

DRUGS (2)
  1. REVLIMID [Suspect]
     Indication: PLASMACYTOMA
     Dosage: 25 MG, X21 DAYS/OFF FOR ONE WEEK, ORAL
     Route: 048
     Dates: start: 20070501
  2. DEXAMETHASONE TAB [Suspect]
     Indication: PLASMACYTOMA
     Dates: start: 20070501

REACTIONS (1)
  - DEEP VEIN THROMBOSIS [None]
